FAERS Safety Report 5158824-1 (Version None)
Quarter: 2006Q4

REPORT INFORMATION
  Report Type: 
  Country: None (occurrence: None)
  Receive Date: 20061128
  Receipt Date: 20061121
  Transmission Date: 20070319
  Serious: Yes (Hospitalization, Other)
  Sender: FDA-Public Use
  Company Number: FR-SANOFI-SYNTHELABO-A02200602969

PATIENT
  Age: 53 Year
  Sex: Male
  Weight: 75 kg

DRUGS (2)
  1. FLUOROURACILE DAKOTA PHARM [Suspect]
     Indication: RECTAL CANCER
     Route: 040
     Dates: start: 20060906, end: 20060906
  2. ELOXATIN [Suspect]
     Indication: RECTAL CANCER
     Route: 042
     Dates: start: 20060906, end: 20060906

REACTIONS (2)
  - BONE MARROW FAILURE [None]
  - INCORRECT DRUG ADMINISTRATION DURATION [None]
